FAERS Safety Report 9495926 (Version 2)
Quarter: 2013Q3

REPORT INFORMATION
  Report Type: Spontaneous
  Country: US (occurrence: US)
  Receive Date: 20130903
  Receipt Date: 20130903
  Transmission Date: 20140515
  Serious: No
  Sender: FDA-Public Use
  Company Number: US-009507513-2012SP023372

PATIENT
  Sex: Female

DRUGS (2)
  1. VICTRELIS [Suspect]
     Dosage: 800 MG, TID
     Route: 048
     Dates: start: 20111018, end: 20120121
  2. PEGINTRON [Suspect]
     Dosage: 150 MICROGRAM, QW
     Route: 058
     Dates: start: 20110916

REACTIONS (11)
  - Pain [Unknown]
  - Dysgeusia [Unknown]
  - Pyrexia [Unknown]
  - Fatigue [Unknown]
  - Influenza like illness [Unknown]
  - Food aversion [Unknown]
  - Vomiting [Unknown]
  - Diarrhoea [Unknown]
  - Nausea [Unknown]
  - Headache [Unknown]
  - Rash [Recovering/Resolving]
